FAERS Safety Report 8193005 (Version 2)
Quarter: 2014Q1

REPORT INFORMATION
  Report Type: Spontaneous
  Country: US (occurrence: US)
  Receive Date: 20111021
  Receipt Date: 20140326
  Transmission Date: 20141002
  Serious: Yes (Hospitalization, Other)
  Sender: FDA-Public Use
  Company Number: US-RANBAXY-2011US-49506

PATIENT
  Age: 40 Year
  Sex: Male

DRUGS (1)
  1. NAPROXEN [Suspect]
     Indication: MIGRAINE
     Dosage: 440 MG, TID
     Route: 048

REACTIONS (3)
  - Gastric ulcer [Recovered/Resolved]
  - Gastrointestinal fistula [Recovered/Resolved]
  - Weight decreased [Recovered/Resolved]
